FAERS Safety Report 17920392 (Version 2)
Quarter: 2020Q3

REPORT INFORMATION
  Report Type: Spontaneous
  Country: US (occurrence: US)
  Receive Date: 20200620
  Receipt Date: 20200821
  Transmission Date: 20201103
  Serious: No
  Sender: FDA-Public Use
  Company Number: US-TEVA-2020-US-1789557

PATIENT
  Sex: Female

DRUGS (1)
  1. ESTRADIOL TEVA [Suspect]
     Active Substance: ESTRADIOL
     Dosage: FORM OF ADMIN: VAGINAL INSERTS?MONDAY, WEDNESDAY, AND FRIDAY EACH WEEK
     Route: 067

REACTIONS (4)
  - Hypersensitivity [Unknown]
  - Infection [Unknown]
  - Allergic reaction to excipient [Unknown]
  - Product prescribing error [Unknown]
